FAERS Safety Report 6635321-5 (Version None)
Quarter: 2010Q1

REPORT INFORMATION
  Report Type: 
  Country: None (occurrence: None)
  Receive Date: 20100315
  Receipt Date: 20100312
  Transmission Date: 20100710
  Serious: Yes (Hospitalization, Other)
  Sender: FDA-Public Use
  Company Number: DE-SANOFI-AVENTIS-2010SA014153

PATIENT
  Age: 70 Year
  Sex: Female

DRUGS (1)
  1. MULTAQ [Suspect]
     Indication: ATRIAL FIBRILLATION
     Route: 048

REACTIONS (4)
  - CARDIAC FAILURE [None]
  - GASTROINTESTINAL DISORDER [None]
  - PLEURAL EFFUSION [None]
  - PULMONARY OEDEMA [None]
